FAERS Safety Report 4632710-5 (Version None)
Quarter: 2005Q1

REPORT INFORMATION
  Report Type: 
  Country: None (occurrence: None)
  Receive Date: 20050325
  Receipt Date: 20050104
  Transmission Date: 20050727
  Serious: No
  Sender: FDA-Public Use
  Company Number: USA041286480

PATIENT
  Age: 79 Year
  Sex: Female

DRUGS (6)
  1. FORTEO [Suspect]
     Indication: OSTEOPOROSIS
     Dates: start: 20041112
  2. VITAMIN E [Concomitant]
  3. ASPIRIN [Concomitant]
  4. CELEXA [Concomitant]
  5. CRANBERRY WITH VITAMIN C [Concomitant]
  6. DICYCLOMINE [Concomitant]

REACTIONS (5)
  - DIARRHOEA [None]
  - DRY MOUTH [None]
  - INJECTION SITE ERYTHEMA [None]
  - INJECTION SITE HAEMORRHAGE [None]
  - INTESTINAL FUNCTIONAL DISORDER [None]
